FAERS Safety Report 8976975 (Version 1)
Quarter: 2012Q4

REPORT INFORMATION
  Report Type: 
  Country: US (occurrence: US)
  Receive Date: 20121220
  Receipt Date: 20121220
  Transmission Date: 20130627
  Serious: No
  Sender: FDA-Public Use
  Company Number: US-GLAXOSMITHKLINE-A0965167A

PATIENT
  Sex: Male

DRUGS (6)
  1. SORIATANE [Suspect]
     Indication: HYPERKERATOSIS
     Dosage: 50MG As required
     Route: 048
  2. SIMVASTATIN [Concomitant]
  3. ASPIRIN [Concomitant]
  4. METOPROLOL [Concomitant]
  5. DIAZEPAM [Concomitant]
  6. HYDROCODONE [Concomitant]

REACTIONS (2)
  - Eye pruritus [Not Recovered/Not Resolved]
  - Myalgia [Unknown]
